FAERS Safety Report 16608854 (Version 6)
Quarter: 2020Q1

REPORT INFORMATION
  Report Type: Spontaneous
  Country: US (occurrence: US)
  Receive Date: 20190722
  Receipt Date: 20200121
  Transmission Date: 20200409
  Serious: No
  Sender: FDA-Public Use
  Company Number: US-PFIZER INC-2019307676

PATIENT
  Age: 71 Year
  Sex: Male
  Weight: 109 kg

DRUGS (1)
  1. SILDENAFIL CITRATE. [Suspect]
     Active Substance: SILDENAFIL CITRATE
     Indication: ERECTILE DYSFUNCTION
     Dosage: 100 MG, 2X/WEEK
     Route: 048
     Dates: start: 2018

REACTIONS (14)
  - Respiration abnormal [Unknown]
  - Nasal congestion [Unknown]
  - Oropharyngeal pain [Unknown]
  - Infection [Unknown]
  - Lung disorder [Unknown]
  - Sneezing [Unknown]
  - Rhinorrhoea [Unknown]
  - Drug ineffective [Unknown]
  - Cough [Unknown]
  - Sinus disorder [Unknown]
  - Pyrexia [Unknown]
  - Nasal discomfort [Unknown]
  - Nasopharyngitis [Unknown]
  - Drug hypersensitivity [Unknown]
